FAERS Safety Report 16249455 (Version 2)
Quarter: 2019Q4

REPORT INFORMATION
  Report Type: Spontaneous
  Country: IE (occurrence: IE)
  Receive Date: 20190429
  Receipt Date: 20191024
  Transmission Date: 20200122
  Serious: Yes (Death, Other)
  Sender: FDA-Public Use
  Company Number: IE-FERRINGPH-2019FE02186

PATIENT
  Sex: Female

DRUGS (1)
  1. PROPESS [Suspect]
     Active Substance: DINOPROSTONE
     Indication: LABOUR INDUCTION
     Dosage: 10 MG, ONCE/SINGLE
     Route: 064
     Dates: start: 20180814, end: 20180815

REACTIONS (1)
  - Stillbirth [Fatal]

NARRATIVE: CASE EVENT DATE: 20180815
